FAERS Safety Report 8365995-2 (Version None)
Quarter: 2012Q2

REPORT INFORMATION
  Report Type: 
  Country: None (occurrence: None)
  Receive Date: 20120517
  Receipt Date: 20120511
  Transmission Date: 20120825
  Serious: Yes (Other)
  Sender: FDA-Public Use
  Company Number: US-PFIZER INC-2012083317

PATIENT
  Sex: Female

DRUGS (1)
  1. FLAGYL [Suspect]
     Indication: DIVERTICULITIS
     Dosage: UNK

REACTIONS (3)
  - PERONEAL NERVE PALSY [None]
  - NEUROPATHY PERIPHERAL [None]
  - LIMB DISCOMFORT [None]
